FAERS Safety Report 15492422 (Version 2)
Quarter: 2018Q4

REPORT INFORMATION
  Report Type: Report from Study
  Country: AU (occurrence: AU)
  Receive Date: 20181012
  Receipt Date: 20181026
  Transmission Date: 20190205
  Serious: Yes (Other)
  Sender: FDA-Public Use
  Company Number: AU-REGENERON PHARMACEUTICALS, INC.-2018-40511

PATIENT

DRUGS (1)
  1. EYLEA [Suspect]
     Active Substance: AFLIBERCEPT
     Indication: NEOVASCULAR AGE-RELATED MACULAR DEGENERATION
     Dosage: Q5-6WKS
     Route: 031
     Dates: start: 20161019

REACTIONS (3)
  - Injection site erythema [Recovered/Resolved]
  - Eye haemorrhage [Unknown]
  - Muscle disorder [Unknown]
